FAERS Safety Report 11642928 (Version 1)
Quarter: 2015Q4

REPORT INFORMATION
  Report Type: Spontaneous
  Country: US (occurrence: None)
  Receive Date: 20151016
  Receipt Date: 20151016
  Transmission Date: 20160304
  Serious: Yes (Death)
  Sender: FDA-Public Use
  Company Number: 1713747-2015-999386

PATIENT
  Age: 22 Year
  Sex: Male

DRUGS (3)
  1. LIBERTY CYCLER CASSETTE [Suspect]
     Active Substance: DEVICE
  2. LIBERTY CYCLER [Suspect]
     Active Substance: DEVICE
  3. DELFLEX WITH DEXTROSE 1.5% [Suspect]
     Active Substance: CALCIUM CHLORIDE\DEXTROSE MONOHYDRATE\MAGNESIUM CHLORIDE\SODIUM CHLORIDE\SODIUM LACTATE
     Indication: CHRONIC KIDNEY DISEASE
     Route: 033

REACTIONS (8)
  - Abdominal pain [None]
  - Nausea [None]
  - Vomiting [None]
  - Blood pressure decreased [None]
  - Device breakage [None]
  - Dehydration [None]
  - Unresponsive to stimuli [None]
  - Malaise [None]

NARRATIVE: CASE EVENT DATE: 20150930
